FAERS Safety Report 15293157 (Version 1)
Quarter: 2018Q4

REPORT INFORMATION
  Report Type: Spontaneous
  Country: US (occurrence: US)
  Receive Date: 20180820
  Receipt Date: 20180820
  Transmission Date: 20190204
  Serious: No
  Sender: FDA-Public Use
  Company Number: US-LUPIN PHARMACEUTICALS INC.-2018-04085

PATIENT
  Age: 10 Year
  Sex: Male

DRUGS (2)
  1. ARGININE [Suspect]
     Active Substance: ARGININE
     Indication: SOMATOTROPIN STIMULATION TEST
     Dosage: 0.5G/KG
     Route: 042
  2. CLONIDINE. [Suspect]
     Active Substance: CLONIDINE
     Indication: SOMATOTROPIN STIMULATION TEST
     Dosage: 0.1 MG/M2, UNK
     Route: 048

REACTIONS (1)
  - Haematuria [Recovered/Resolved]
